FAERS Safety Report 8796953 (Version 1)
Quarter: 2012Q4

REPORT INFORMATION
  Report Type: 
  Country: BD (occurrence: BD)
  Receive Date: 20120920
  Receipt Date: 20120920
  Transmission Date: 20130627
  Serious: Yes (Death)
  Sender: FDA-Public Use
  Company Number: PHHY2012BD080458

PATIENT
  Age: 63 Year
  Sex: Male

DRUGS (1)
  1. EXELON PATCH [Suspect]
     Indication: DEMENTIA
     Dosage: 4.6 mg, Daily
     Route: 062
     Dates: start: 201205

REACTIONS (2)
  - Renal failure [Fatal]
  - Pulmonary oedema [Fatal]
